FAERS Safety Report 9556473 (Version 1)
Quarter: 2013Q3

REPORT INFORMATION
  Report Type: Spontaneous
  Country: US (occurrence: None)
  Receive Date: 20130815
  Receipt Date: 20130815
  Transmission Date: 20140515
  Serious: Yes (Hospitalization, Other)
  Sender: FDA-Public Use
  Company Number: ADR-2012-01913

PATIENT
  Age: 62 Year
  Sex: Male

DRUGS (3)
  1. BACLOFEN INTRATHECAL [Suspect]
  2. INFUMORPH 10MG/ML [Concomitant]
  3. CLONIDINE 1OMG/ML [Concomitant]

REACTIONS (4)
  - Confusional state [None]
  - Hypotonia [None]
  - Hypotension [None]
  - Overdose [None]
